FAERS Safety Report 4516708-3 (Version None)
Quarter: 2005Q1

REPORT INFORMATION
  Report Type: 
  Country: None (occurrence: None)
  Receive Date: 20041005
  Receipt Date: 20040701
  Transmission Date: 20050727
  Serious: Yes (Other)
  Sender: FDA-Public Use
  Company Number: 001876

PATIENT
  Sex: Female
  Weight: 46.3 kg

DRUGS (1)
  1. SEASONALE [Suspect]
     Indication: ORAL CONTRACEPTION
     Dosage: 1.00 TABLET, QD, ORAL
     Route: 048
     Dates: start: 20040611, end: 20040619

REACTIONS (3)
  - FLUID RETENTION [None]
  - OEDEMA PERIPHERAL [None]
  - WEIGHT INCREASED [None]
